FAERS Safety Report 6822515-9 (Version None)
Quarter: 2010Q3

REPORT INFORMATION
  Report Type: 
  Country: None (occurrence: None)
  Receive Date: 20100708
  Receipt Date: 20100629
  Transmission Date: 20110219
  Serious: Yes (Other)
  Sender: FDA-Public Use
  Company Number: GB-BRISTOL-MYERS SQUIBB COMPANY-15156920

PATIENT
  Age: 68 Year
  Sex: Male

DRUGS (3)
  1. CARBIDOPA + LEVODOPA [Suspect]
     Route: 048
     Dates: start: 20030101
  2. ROPINIROLE [Suspect]
     Indication: PARKINSON'S DISEASE
     Dates: end: 20070101
  3. ENTACAPONE [Concomitant]

REACTIONS (6)
  - FEELING COLD [None]
  - HALLUCINATION, VISUAL [None]
  - HYPERSEXUALITY [None]
  - OBSESSIVE-COMPULSIVE DISORDER [None]
  - PARKINSON'S DISEASE [None]
  - PROGRESSIVE SUPRANUCLEAR PALSY [None]
